FAERS Safety Report 12246442 (Version 1)
Quarter: 2016Q2

REPORT INFORMATION
  Report Type: Spontaneous
  Country: DE (occurrence: DE)
  Receive Date: 20160407
  Receipt Date: 20160407
  Transmission Date: 20160815
  Serious: Yes (Congenital Anomaly)
  Sender: FDA-Public Use
  Company Number: DE-CONCORDIA PHARMACEUTICALS INC.-CO-PL-DE-2016-161

PATIENT
  Age: 1 Day
  Sex: Male

DRUGS (7)
  1. METOPROLOL. [Suspect]
     Active Substance: METOPROLOL
     Indication: PRODUCT USED FOR UNKNOWN INDICATION
     Route: 048
     Dates: start: 20150210, end: 20150911
  2. MARCUMAR [Concomitant]
     Active Substance: PHENPROCOUMON
     Route: 064
     Dates: start: 20150210, end: 20150308
  3. CLEXANE [Concomitant]
     Active Substance: ENOXAPARIN SODIUM
     Route: 064
     Dates: start: 20150309, end: 20150911
  4. ASPIRIN. [Concomitant]
     Active Substance: ASPIRIN
     Route: 064
     Dates: start: 20150210, end: 20150911
  5. FOLSAURE [Concomitant]
     Active Substance: FOLIC ACID
     Route: 064
     Dates: start: 20150209, end: 20150313
  6. LAMOTRIGINE. [Suspect]
     Active Substance: LAMOTRIGINE
     Indication: PRODUCT USED FOR UNKNOWN INDICATION
     Route: 064
     Dates: start: 20150210, end: 20150911
  7. HYDROXYCHLOROQUINE SULFATE. [Suspect]
     Active Substance: HYDROXYCHLOROQUINE SULFATE
     Indication: PRODUCT USED FOR UNKNOWN INDICATION
     Route: 064
     Dates: start: 20150210, end: 20150911

REACTIONS (1)
  - Atrial septal defect [Unknown]

NARRATIVE: CASE EVENT DATE: 20150911
